FAERS Safety Report 5955172-4 (Version None)
Quarter: 2008Q4

REPORT INFORMATION
  Report Type: 
  Country: None (occurrence: None)
  Receive Date: 20081112
  Receipt Date: 20081030
  Transmission Date: 20090506
  Serious: Yes (Hospitalization)
  Sender: FDA-Public Use
  Company Number: 1000001616

PATIENT
  Age: 36 Year
  Sex: Female

DRUGS (6)
  1. CITALOPRAM HYDROBROMIDE [Suspect]
     Dosage: 20 MG (20 MG, 1 IN 1 D)
     Dates: start: 20050816
  2. RISPERDAL [Suspect]
     Dosage: 4 MG (4 MG, 1 IN 1 D); 3 MG (3 MG, 1 IN 1 D)
     Dates: start: 20050729, end: 20050804
  3. RISPERDAL [Suspect]
     Dosage: 4 MG (4 MG, 1 IN 1 D); 3 MG (3 MG, 1 IN 1 D)
     Dates: start: 20050805
  4. AKINETON [Concomitant]
  5. HALDOL (INJECTION) [Concomitant]
  6. LORAZEPAM [Concomitant]

REACTIONS (3)
  - ALANINE AMINOTRANSFERASE INCREASED [None]
  - BLOOD PROLACTIN INCREASED [None]
  - DRUG INTERACTION [None]
